FAERS Safety Report 4870623-4 (Version None)
Quarter: 2006Q1

REPORT INFORMATION
  Report Type: 
  Country: None (occurrence: None)
  Receive Date: 20060103
  Receipt Date: 20051222
  Transmission Date: 20060701
  Serious: Yes (Death, Hospitalization)
  Sender: FDA-Public Use
  Company Number: US-JNJFOC-20051205655

PATIENT
  Age: 20 Year
  Sex: Male

DRUGS (3)
  1. PARACETAMOL [Suspect]
     Route: 048
  2. PARACETAMOL [Suspect]
     Indication: SUICIDE ATTEMPT
     Route: 048
  3. PHENYTOIN [Suspect]
     Indication: EPILEPSY

REACTIONS (4)
  - COMPLETED SUICIDE [None]
  - HEPATIC FAILURE [None]
  - INTENTIONAL OVERDOSE [None]
  - RENAL FAILURE [None]
